FAERS Safety Report 19158457 (Version 1)
Quarter: 2021Q2

REPORT INFORMATION
  Report Type: Spontaneous
  Country: GB (occurrence: GB)
  Receive Date: 20210420
  Receipt Date: 20210420
  Transmission Date: 20210717
  Serious: Yes (Hospitalization)
  Sender: FDA-Public Use
  Company Number: GB-MYLANLABS-2021M1023287

PATIENT
  Age: 21 Year
  Sex: Female
  Weight: 79 kg

DRUGS (4)
  1. MIRTAZAPINE. [Concomitant]
     Active Substance: MIRTAZAPINE
     Indication: ILL-DEFINED DISORDER
     Dosage: UNK
  2. BETAMETHASONE. [Suspect]
     Active Substance: BETAMETHASONE
     Indication: ECZEMA
     Dosage: UNK UNK, PRN APPLY AS NEEDED
     Route: 061
  3. FEXOFENADINE HYDROCHLORIDE. [Concomitant]
     Active Substance: FEXOFENADINE HYDROCHLORIDE
     Indication: ILL-DEFINED DISORDER
     Dosage: UNK
  4. MOMETASONE [Suspect]
     Active Substance: MOMETASONE
     Indication: ECZEMA
     Dosage: UNK
     Route: 061

REACTIONS (2)
  - Erythema [Not Recovered/Not Resolved]
  - Medication error [Unknown]

NARRATIVE: CASE EVENT DATE: 20210126
